FAERS Safety Report 4620810-5 (Version None)
Quarter: 2005Q1

REPORT INFORMATION
  Report Type: 
  Country: None (occurrence: None)
  Receive Date: 20050325
  Receipt Date: 20050316
  Transmission Date: 20050727
  Serious: Yes (Death, Hospitalization, Other)
  Sender: FDA-Public Use
  Company Number: US-2005-000749

PATIENT
  Age: 50 Year
  Sex: Male
  Weight: 125.6 kg

DRUGS (6)
  1. GM-CSF(SARGRAMOSTIM) INJECTION [Suspect]
     Indication: MALIGNANT MELANOMA
     Dosage: 125 UG/M2, 14D ON, 14D OFF, SUBCUTANEOUS
     Route: 058
     Dates: start: 20020130, end: 20050101
  2. PROPRANOLOL [Concomitant]
  3. MOTRIN [Concomitant]
  4. NEURONTIN [Concomitant]
  5. DIFLUCAN [Concomitant]
  6. COUMADIN [Concomitant]

REACTIONS (4)
  - ACUTE MYELOID LEUKAEMIA [None]
  - DEEP VEIN THROMBOSIS [None]
  - PULMONARY COCCIDIOIDES [None]
  - RENAL FAILURE [None]
